FAERS Safety Report 8759340 (Version 2)
Quarter: 2012Q4

REPORT INFORMATION
  Report Type: 
  Country: US (occurrence: US)
  Receive Date: 20120829
  Receipt Date: 20121017
  Transmission Date: 20130627
  Serious: Yes (Other)
  Sender: FDA-Public Use
  Company Number: US-BAYER-2012-086700

PATIENT
  Age: 41 Year
  Sex: Female
  Weight: 63.04 kg

DRUGS (6)
  1. MIRENA [Suspect]
     Indication: CONTRACEPTION
     Dosage: 20 mcg/24hr, CONT
     Route: 015
     Dates: start: 20070927, end: 20101229
  2. MIRENA [Suspect]
     Indication: MIGRAINE
     Dosage: 20 mcg/24hr, CONT
     Route: 015
     Dates: start: 20101229, end: 20120830
  3. SYNTHROID [Concomitant]
     Dosage: 0.075, QD
  4. INSULIN [Concomitant]
  5. AMITRIPTYLIN [Concomitant]
     Dosage: 10 mg, QD
  6. MILNACIPRAN HYDROCHLORIDE [Concomitant]
     Dosage: 50 mg, BID

REACTIONS (8)
  - Urinary tract infection [None]
  - Vulvovaginal mycotic infection [None]
  - Device difficult to use [None]
  - Amenorrhoea [Recovered/Resolved]
  - Migraine [None]
  - Vaginal haemorrhage [None]
  - Uterine cervix stenosis [None]
  - Menometrorrhagia [None]
